FAERS Safety Report 14162818 (Version 3)
Quarter: 2017Q4

REPORT INFORMATION
  Report Type: Report from Study
  Country: US (occurrence: US)
  Receive Date: 20171106
  Receipt Date: 20171201
  Transmission Date: 20180321
  Serious: No
  Sender: FDA-Public Use
  Company Number: PHEH2017US035739

PATIENT
  Age: 47 Year

DRUGS (1)
  1. COSENTYX [Suspect]
     Active Substance: SECUKINUMAB
     Indication: PRODUCT USED FOR UNKNOWN INDICATION
     Dosage: 300 MG, QMO
     Route: 042
     Dates: start: 20171026

REACTIONS (3)
  - Inappropriate schedule of drug administration [Unknown]
  - Incorrect route of drug administration [Unknown]
  - Device breakage [Unknown]

NARRATIVE: CASE EVENT DATE: 20171026
